FAERS Safety Report 12630033 (Version 1)
Quarter: 2016Q3

REPORT INFORMATION
  Report Type: Spontaneous
  Country: US (occurrence: US)
  Receive Date: 20160808
  Receipt Date: 20160808
  Transmission Date: 20161109
  Serious: Yes (Death, Hospitalization, Other)
  Sender: FDA-Public Use
  Company Number: US-TARO PHARMACEUTICALS USA.,INC-2016SUN00389

PATIENT
  Age: 62 Year
  Sex: Male

DRUGS (8)
  1. D50W AMPOULE [Concomitant]
     Indication: PRODUCT USED FOR UNKNOWN INDICATION
  2. ACETYLCYSTEINE (NAC) [Concomitant]
     Dosage: 10 G, UNK
     Route: 042
  3. PANTOPRAZOLE DRIP [Concomitant]
     Indication: PRODUCT USED FOR UNKNOWN INDICATION
  4. CALCIUM CHLORIDE. [Concomitant]
     Active Substance: CALCIUM CHLORIDE
     Indication: PRODUCT USED FOR UNKNOWN INDICATION
  5. ACETAMINOPHEN. [Suspect]
     Active Substance: ACETAMINOPHEN
     Indication: PRODUCT USED FOR UNKNOWN INDICATION
     Dosage: UNK
     Route: 065
  6. KAYEXALATE [Concomitant]
     Active Substance: SODIUM POLYSTYRENE SULFONATE
     Indication: PRODUCT USED FOR UNKNOWN INDICATION
     Dosage: 30 MG, 2 DOSES
  7. INSULIN [Concomitant]
     Active Substance: INSULIN NOS
     Indication: PRODUCT USED FOR UNKNOWN INDICATION
     Dosage: 10 UNITS, UNK
  8. ACETYLCYSTEINE (NAC) [Concomitant]
     Dosage: 20 G, UNK
     Route: 042

REACTIONS (7)
  - Gastrointestinal haemorrhage [Unknown]
  - Haematemesis [Unknown]
  - Multiple organ dysfunction syndrome [Unknown]
  - Hyperkalaemia [Unknown]
  - Cardio-respiratory arrest [Fatal]
  - Acute hepatic failure [Unknown]
  - Overdose [Unknown]
